FAERS Safety Report 18523241 (Version 1)
Quarter: 2020Q4

REPORT INFORMATION
  Report Type: Spontaneous
  Country: CN (occurrence: CN)
  Receive Date: 20201119
  Receipt Date: 20201119
  Transmission Date: 20210114
  Serious: Yes (Hospitalization)
  Sender: FDA-Public Use
  Company Number: CN-PFIZER INC-2020451991

PATIENT
  Age: 78 Year
  Sex: Male
  Weight: 40 kg

DRUGS (1)
  1. LINEZOLID. [Suspect]
     Active Substance: LINEZOLID
     Indication: ANTI-INFECTIVE THERAPY
     Dosage: 300 ML, 2X/DAY
     Route: 041
     Dates: start: 20201026, end: 20201101

REACTIONS (8)
  - Insomnia [Recovered/Resolved]
  - Restlessness [Recovering/Resolving]
  - PCO2 abnormal [Unknown]
  - Dysphonia [Recovered/Resolved]
  - Heart rate increased [Unknown]
  - Dry mouth [Recovering/Resolving]
  - Fatigue [Recovering/Resolving]
  - Oxygen saturation decreased [Unknown]

NARRATIVE: CASE EVENT DATE: 20201026
